FAERS Safety Report 5256791-3 (Version None)
Quarter: 2007Q1

REPORT INFORMATION
  Report Type: 
  Country: None (occurrence: None)
  Receive Date: 20070306
  Receipt Date: 20070228
  Transmission Date: 20070707
  Serious: No
  Sender: FDA-Public Use
  Company Number: 2006UW07954

PATIENT
  Age: 575 Month
  Sex: Female
  Weight: 122.7 kg

DRUGS (6)
  1. SEROQUEL [Suspect]
     Indication: BIPOLAR DISORDER
     Route: 048
     Dates: start: 20021001
  2. SEROQUEL [Suspect]
     Indication: DEPRESSION
     Route: 048
     Dates: start: 20021001
  3. RISPERDAL [Concomitant]
  4. MELLARIL [Concomitant]
  5. NEURONTIN [Concomitant]
  6. TEGRETOL [Concomitant]

REACTIONS (1)
  - DIABETES MELLITUS [None]
